FAERS Safety Report 19479131 (Version 1)
Quarter: 2021Q2

REPORT INFORMATION
  Report Type: Spontaneous
  Country: US (occurrence: US)
  Receive Date: 20210630
  Receipt Date: 20210630
  Transmission Date: 20210717
  Serious: Yes (Other)
  Sender: FDA-Public Use
  Company Number: US-ASTRAZENECA-2021A551774

PATIENT
  Weight: 63.5 kg

DRUGS (1)
  1. SYMBICORT [Suspect]
     Active Substance: BUDESONIDE\FORMOTEROL FUMARATE DIHYDRATE
     Indication: DYSPNOEA
     Dosage: 80 MCG 2 PUFFS TWICE A DAY
     Route: 055
     Dates: start: 202003

REACTIONS (6)
  - Pain [Unknown]
  - Asthma [Unknown]
  - Bronchitis [Unknown]
  - Cardiac failure congestive [Not Recovered/Not Resolved]
  - Cough [Recovered/Resolved]
  - Device issue [Unknown]
